FAERS Safety Report 9736378 (Version 4)
Quarter: 2014Q1

REPORT INFORMATION
  Report Type: Spontaneous
  Country: IT (occurrence: IT)
  Receive Date: 20131206
  Receipt Date: 20140210
  Transmission Date: 20141002
  Serious: Yes (Hospitalization)
  Sender: FDA-Public Use
  Company Number: PHHY2013IT138298

PATIENT
  Age: 59 Year
  Sex: Male

DRUGS (6)
  1. SINTROM [Suspect]
     Indication: DEEP VEIN THROMBOSIS
     Dosage: 4 MG, DAILY
     Route: 048
     Dates: start: 20060101, end: 20131116
  2. AMOXICILLIN [Concomitant]
     Indication: PRODUCTIVE COUGH
     Dosage: 1 DF, DAILY
     Route: 048
     Dates: start: 20131112, end: 20131115
  3. ALFUZOSIN [Concomitant]
     Dosage: 10 MG, UNK
     Route: 048
  4. EFEXOR [Concomitant]
     Dosage: 1 DF, UNK
     Route: 048
  5. SEQUACOR [Concomitant]
     Dosage: 1.25 MG, UNK
     Route: 048
  6. PARIET [Concomitant]
     Dosage: 10 MG, UNK
     Route: 048

REACTIONS (1)
  - Haemoptysis [Recovered/Resolved]
